FAERS Safety Report 7957567-6 (Version None)
Quarter: 2011Q4

REPORT INFORMATION
  Report Type: 
  Country: None (occurrence: None)
  Receive Date: 20111205
  Receipt Date: 20111125
  Transmission Date: 20120403
  Serious: Yes (Other)
  Sender: FDA-Public Use
  Company Number: FR-VIIV HEALTHCARE LIMITED-B0765110A

PATIENT
  Sex: Female

DRUGS (3)
  1. ABACAVIR SULFATE AND LAMIVUDINE [Suspect]
     Indication: HIV INFECTION CDC CATEGORY C3
     Dosage: 1UNIT PER DAY
     Route: 048
     Dates: start: 20110104, end: 20110210
  2. ISENTRESS [Concomitant]
     Indication: HIV INFECTION CDC CATEGORY C3
     Dosage: 400MG PER DAY
     Route: 048
     Dates: start: 20110104
  3. TRUVADA [Concomitant]
     Indication: HIV INFECTION CDC CATEGORY C3
     Route: 065
     Dates: end: 20110104

REACTIONS (1)
  - INSOMNIA [None]
